FAERS Safety Report 7271195-X (Version None)
Quarter: 2011Q1

REPORT INFORMATION
  Report Type: 
  Country: None (occurrence: None)
  Receive Date: 20110202
  Receipt Date: 20110129
  Transmission Date: 20110831
  Serious: Yes (Other)
  Sender: FDA-Public Use
  Company Number: US-PFIZER INC-2011021108

PATIENT
  Sex: Female

DRUGS (3)
  1. LYRICA [Suspect]
     Dosage: 450 MG, 1X/DAY
     Route: 048
     Dates: start: 20100101
  2. LYRICA [Suspect]
     Indication: FIBROMYALGIA
     Dosage: 150 MG
  3. LOTREL [Concomitant]
     Indication: HYPERTENSION
     Dosage: 520 MG, 2X/DAY
     Route: 048

REACTIONS (4)
  - LOWER RESPIRATORY TRACT INFECTION [None]
  - OEDEMA PERIPHERAL [None]
  - MALAISE [None]
  - GAIT DISTURBANCE [None]
